FAERS Safety Report 5568332-1 (Version None)
Quarter: 2007Q4

REPORT INFORMATION
  Report Type: 
  Country: None (occurrence: None)
  Receive Date: 20071220
  Receipt Date: 20071220
  Transmission Date: 20080405
  Serious: Yes (Hospitalization)
  Sender: FDA-Public Use
  Company Number: PHHO2006CA20407

PATIENT
  Age: 67 Year
  Sex: Female
  Weight: 57 kg

DRUGS (10)
  1. ASPIRIN [Concomitant]
     Dosage: 81 MG, QD
     Dates: start: 20060808
  2. NORVASC [Concomitant]
     Dosage: 5 MG, QD
     Dates: start: 20060808
  3. ZOLEDRONIC ACID [Suspect]
     Indication: OSTEOPOROTIC FRACTURE
     Dosage: DOUBLE BLINDED
     Route: 042
     Dates: start: 20031119
  4. ZOLEDRONIC ACID [Suspect]
     Dosage: 5MG, ONCE YEARLY
  5. PREVACID [Concomitant]
     Dosage: 30 MG, QD
     Dates: start: 20060808
  6. REMINYL [Concomitant]
     Dosage: 24 MG, QD
     Dates: start: 20060808
  7. PREMARIN [Concomitant]
     Dosage: 25 MG, QD
     Dates: start: 20060808
  8. ARICEPT [Concomitant]
     Dosage: 10 MG, QHS
     Dates: start: 20060601
  9. CALCIUM CARBONATE [Concomitant]
     Indication: OSTEOPOROTIC FRACTURE
  10. VITAMIN D [Concomitant]
     Indication: OSTEOPOROTIC FRACTURE

REACTIONS (4)
  - BLOOD URINE PRESENT [None]
  - BUNDLE BRANCH BLOCK LEFT [None]
  - DEMENTIA [None]
  - MENTAL STATUS CHANGES [None]
